FAERS Safety Report 4504999-4 (Version None)
Quarter: 2004Q4

REPORT INFORMATION
  Report Type: 
  Country: None (occurrence: None)
  Receive Date: 20041116
  Receipt Date: 20041029
  Transmission Date: 20050328
  Serious: Yes (Other)
  Sender: FDA-Public Use
  Company Number: DSA_25250_2004

PATIENT

DRUGS (1)
  1. ENALAPRIL MALEATE [Suspect]
     Dosage: DF PO
     Route: 048

REACTIONS (1)
  - BLOOD DISORDER [None]
